FAERS Safety Report 5130433-X (Version None)
Quarter: 2006Q4

REPORT INFORMATION
  Report Type: 
  Country: None (occurrence: None)
  Receive Date: 20061019
  Receipt Date: 20060929
  Transmission Date: 20070319
  Serious: Yes (Hospitalization)
  Sender: FDA-Public Use
  Company Number: PHEH2006US12349

PATIENT
  Sex: Female

DRUGS (2)
  1. GLEEVEC [Suspect]
     Route: 048
  2. LEVOTHYROXINE SODIUM [Suspect]
     Route: 048

REACTIONS (2)
  - DRUG LEVEL DECREASED [None]
  - FALL [None]
